FAERS Safety Report 7473866-9 (Version None)
Quarter: 2011Q2

REPORT INFORMATION
  Report Type: 
  Country: None (occurrence: None)
  Receive Date: 20110511
  Receipt Date: 20110331
  Transmission Date: 20111010
  Serious: Yes (Hospitalization, Other)
  Sender: FDA-Public Use
  Company Number: US-BAYER-2010-006782

PATIENT
  Age: 18 Year
  Sex: Female
  Weight: 95 kg

DRUGS (4)
  1. ALEVE SINUS + HEADACHE [Concomitant]
     Indication: ANALGESIC THERAPY
     Dosage: WHEN NEEDED
  2. YAZ [Suspect]
     Indication: CONTRACEPTION
     Dosage: UNK
     Dates: start: 20080101, end: 20090101
  3. YASMIN [Suspect]
  4. HYDROCODONE BITARTRATE [Concomitant]
     Indication: ANALGESIC THERAPY
     Dosage: ONE PILL DAILY
     Dates: start: 20090801

REACTIONS (6)
  - CHOLECYSTITIS CHRONIC [None]
  - CHOLELITHIASIS [None]
  - ABDOMINAL PAIN UPPER [None]
  - BILIARY COLIC [None]
  - NAUSEA [None]
  - DIARRHOEA [None]
